FAERS Safety Report 22906648 (Version 3)
Quarter: 2023Q4

REPORT INFORMATION
  Report Type: Spontaneous
  Country: NL (occurrence: NL)
  Receive Date: 20230905
  Receipt Date: 20231106
  Transmission Date: 20240110
  Serious: Yes (Other)
  Sender: FDA-Public Use
  Company Number: NL-BAYER-2023A121519

PATIENT
  Age: 25 Year
  Sex: Female

DRUGS (1)
  1. MIRENA [Suspect]
     Active Substance: LEVONORGESTREL
     Dosage: 20?G/DAY
     Route: 015
     Dates: start: 20230824, end: 20230824

REACTIONS (3)
  - Device breakage [None]
  - Complication of device insertion [None]
  - Procedural pain [Recovered/Resolved]

NARRATIVE: CASE EVENT DATE: 20230824
